FAERS Safety Report 25878261 (Version 1)
Quarter: 2025Q4

REPORT INFORMATION
  Report Type: Spontaneous
  Country: EU (occurrence: EU)
  Receive Date: 20251003
  Receipt Date: 20251003
  Transmission Date: 20260118
  Serious: Yes (Hospitalization)
  Sender: RANBAXY
  Company Number: EU-MINISAL02-1044231

PATIENT
  Age: 69 Year
  Sex: Male
  Weight: 90 kg

DRUGS (3)
  1. OXALIPLATIN [Suspect]
     Active Substance: OXALIPLATIN
     Indication: Gastric cancer
     Dosage: 130 MG CYCLE 14 DAYS
     Route: 042
     Dates: start: 20250520
  2. FLUOROURACIL [Suspect]
     Active Substance: FLUOROURACIL
     Indication: Gastric cancer
     Dosage: 640 MG CYCLO 14 DAYS, BOLUS
     Route: 042
     Dates: start: 20250520
  3. FLUOROURACIL [Suspect]
     Active Substance: FLUOROURACIL
     Dosage: 3800 MG INFUSION 46 H
     Route: 042

REACTIONS (1)
  - Febrile neutropenia [Recovered/Resolved with Sequelae]

NARRATIVE: CASE EVENT DATE: 20250604
